FAERS Safety Report 7758554-3 (Version None)
Quarter: 2011Q3

REPORT INFORMATION
  Report Type: 
  Country: None (occurrence: None)
  Receive Date: 20110919
  Receipt Date: 20110905
  Transmission Date: 20111222
  Serious: Yes (Death, Hospitalization)
  Sender: FDA-Public Use
  Company Number: HU-ELI_LILLY_AND_COMPANY-HU201109001308

PATIENT
  Age: 62 Year
  Sex: Male

DRUGS (2)
  1. ZYPREXA [Suspect]
     Dosage: 20 MG, QD
  2. OLANZAPINE [Suspect]
     Indication: SCHIZOPHRENIA
     Dosage: 300 MG, 2/M
     Route: 030

REACTIONS (4)
  - ASTHENIA [None]
  - DISABILITY [None]
  - DEATH [None]
  - PNEUMONIA [None]
